FAERS Safety Report 15237995 (Version 1)
Quarter: 2018Q3

REPORT INFORMATION
  Report Type: Spontaneous
  Country: NL (occurrence: NL)
  Receive Date: 20180803
  Receipt Date: 20180803
  Transmission Date: 20181010
  Serious: Yes (Other)
  Sender: FDA-Public Use
  Company Number: NL-MYLANLABS-2018M1058011

PATIENT
  Age: 49 Year
  Sex: Female
  Weight: 75 kg

DRUGS (1)
  1. VENLAFAXINE [Suspect]
     Active Substance: VENLAFAXINE HYDROCHLORIDE
     Indication: DEPRESSION
     Dosage: 150 MG, QD,1 X PER DAG 1 STUK
     Dates: start: 20170801

REACTIONS (9)
  - Hepatic steatosis [Unknown]
  - Musculoskeletal chest pain [Unknown]
  - Restless legs syndrome [Unknown]
  - Pneumonia [Unknown]
  - Fatigue [Unknown]
  - Abdominal pain [Unknown]
  - Palpitations [Unknown]
  - Weight increased [Unknown]
  - Headache [Unknown]

NARRATIVE: CASE EVENT DATE: 20171201
